FAERS Safety Report 21325529 (Version 1)
Quarter: 2022Q3

REPORT INFORMATION
  Report Type: Spontaneous
  Country: US (occurrence: US)
  Receive Date: 20220912
  Receipt Date: 20220912
  Transmission Date: 20221026
  Serious: No
  Sender: FDA-Public Use
  Company Number: US-BEH-2022149349

PATIENT
  Sex: Female

DRUGS (3)
  1. HIZENTRA [Suspect]
     Active Substance: HUMAN IMMUNOGLOBULIN G
     Indication: Immunodeficiency common variable
     Dosage: 7 GRAM, QW
     Route: 058
     Dates: start: 202208
  2. PREDNISONE [Concomitant]
     Active Substance: PREDNISONE
     Indication: Premedication
  3. PREDNISONE [Concomitant]
     Active Substance: PREDNISONE
     Indication: Premedication

REACTIONS (2)
  - Migraine [Unknown]
  - Back pain [Unknown]
